FAERS Safety Report 7014487-1 (Version None)
Quarter: 2010Q3

REPORT INFORMATION
  Report Type: 
  Country: None (occurrence: None)
  Receive Date: 20100927
  Receipt Date: 20100913
  Transmission Date: 20110219
  Serious: Yes (Hospitalization)
  Sender: FDA-Public Use
  Company Number: US-ELI_LILLY_AND_COMPANY-US201009004087

PATIENT
  Sex: Female

DRUGS (16)
  1. FORTEO [Suspect]
     Indication: OSTEOPOROSIS
     Dosage: 20 UG, UNKNOWN
     Dates: start: 20100501
  2. FORTEO [Suspect]
     Dosage: 20 UG, DAILY (1/D)
     Route: 058
     Dates: start: 20100630
  3. SYNTHROID [Concomitant]
  4. SPIRIVA [Concomitant]
  5. LISINOPRIL [Concomitant]
  6. OXYBUTYNIN [Concomitant]
  7. PLAQUENIL [Concomitant]
  8. ACYCLOVIR SODIUM [Concomitant]
  9. PREDNISONE [Concomitant]
  10. VITAMIN B-12 [Concomitant]
     Dosage: UNK, MONTHLY (1/M)
     Route: 058
  11. ROXICET [Concomitant]
  12. FLEXERIL [Concomitant]
  13. ALBUTEROL [Concomitant]
  14. ATROVENT [Concomitant]
  15. VOLTAREN [Concomitant]
  16. ADVAIR DISKUS 100/50 [Concomitant]

REACTIONS (4)
  - CHRONIC OBSTRUCTIVE PULMONARY DISEASE [None]
  - COMPRESSION FRACTURE [None]
  - LUNG DISORDER [None]
  - THORACIC VERTEBRAL FRACTURE [None]
